FAERS Safety Report 11811829 (Version 4)
Quarter: 2015Q4

REPORT INFORMATION
  Report Type: Spontaneous
  Country: RU (occurrence: RU)
  Receive Date: 20151208
  Receipt Date: 20151218
  Transmission Date: 20160305
  Serious: Yes (Hospitalization)
  Sender: FDA-Public Use
  Company Number: RU-JNJFOC-20151120980

PATIENT
  Age: 29 Year
  Sex: Female

DRUGS (13)
  1. REMICADE [Suspect]
     Active Substance: INFLIXIMAB
     Indication: PSORIASIS
     Route: 042
     Dates: start: 20151023
  2. IBUPROFEN. [Suspect]
     Active Substance: IBUPROFEN
     Indication: PSORIATIC ARTHROPATHY
     Route: 048
     Dates: start: 20151112
  3. REMICADE [Suspect]
     Active Substance: INFLIXIMAB
     Indication: PSORIASIS
     Dosage: 6-8 WEEKS
     Route: 042
     Dates: start: 20151120
  4. REMICADE [Suspect]
     Active Substance: INFLIXIMAB
     Indication: PSORIASIS
     Dosage: 6-8 WEEKS
     Route: 042
     Dates: start: 20151113
  5. REMICADE [Suspect]
     Active Substance: INFLIXIMAB
     Indication: PSORIASIS
     Dosage: 6-8 WEEKS
     Route: 042
     Dates: start: 2011
  6. IBUPROFEN. [Suspect]
     Active Substance: IBUPROFEN
     Indication: PSORIASIS
     Route: 048
     Dates: start: 20151112
  7. PREDNISONE. [Suspect]
     Active Substance: PREDNISONE
     Indication: PRODUCT USED FOR UNKNOWN INDICATION
     Route: 065
  8. REMICADE [Suspect]
     Active Substance: INFLIXIMAB
     Indication: PSORIASIS
     Dosage: 6-8 WEEKS
     Route: 042
     Dates: start: 20131010
  9. METHYLPREDNISOLONE. [Suspect]
     Active Substance: METHYLPREDNISOLONE
     Indication: PSORIASIS
     Route: 048
     Dates: start: 20151111
  10. REMICADE [Suspect]
     Active Substance: INFLIXIMAB
     Indication: PSORIASIS
     Dosage: 6-8 WEEKS
     Route: 042
     Dates: start: 20150902
  11. REMICADE [Suspect]
     Active Substance: INFLIXIMAB
     Indication: PSORIASIS
     Dosage: 6-8 WEEKS
     Route: 042
     Dates: start: 20111114, end: 20131009
  12. METHYLPREDNISOLONE. [Suspect]
     Active Substance: METHYLPREDNISOLONE
     Indication: PSORIATIC ARTHROPATHY
     Route: 048
     Dates: start: 20151111
  13. REMICADE [Suspect]
     Active Substance: INFLIXIMAB
     Indication: PSORIASIS
     Dosage: 6-8 WEEKS
     Route: 042
     Dates: start: 20151202

REACTIONS (8)
  - Psoriatic arthropathy [Unknown]
  - Exposure during pregnancy [Not Recovered/Not Resolved]
  - Psoriasis [Unknown]
  - Rash [Not Recovered/Not Resolved]
  - Bacterial test [Unknown]
  - Red blood cell sedimentation rate increased [Unknown]
  - Body temperature increased [Not Recovered/Not Resolved]
  - Arthralgia [Not Recovered/Not Resolved]

NARRATIVE: CASE EVENT DATE: 20150818
